FAERS Safety Report 6102935-0 (Version None)
Quarter: 2009Q1

REPORT INFORMATION
  Report Type: 
  Country: None (occurrence: None)
  Receive Date: 20090227
  Receipt Date: 20090218
  Transmission Date: 20090719
  Serious: No
  Sender: FDA-Public Use
  Company Number: 20096239

PATIENT
  Age: 15 Year
  Sex: Male
  Weight: 35 kg

DRUGS (5)
  1. BACLOFEN [Suspect]
     Indication: MUSCLE SPASTICITY
     Dosage: MCG, DAILY, INTRATHECAL - SEE B
     Route: 037
     Dates: start: 20070622
  2. TEGRETOL [Concomitant]
  3. CORTRIL [Concomitant]
  4. SELENICA-R [Concomitant]
  5. DIAZEPAM [Concomitant]

REACTIONS (4)
  - IATROGENIC INJURY [None]
  - IMPLANT SITE EFFUSION [None]
  - INTRACRANIAL HYPOTENSION [None]
  - PROCEDURAL COMPLICATION [None]
